FAERS Safety Report 6111148-8 (Version None)
Quarter: 2009Q1

REPORT INFORMATION
  Report Type: 
  Country: None (occurrence: None)
  Receive Date: 20090309
  Receipt Date: 20090227
  Transmission Date: 20090719
  Serious: Yes (Other)
  Sender: FDA-Public Use
  Company Number: 2009SP004002

PATIENT
  Age: 30 Year
  Sex: Male

DRUGS (1)
  1. ELOCON [Suspect]
     Indication: DERMATOSIS
     Dosage: CUT
     Route: 003
     Dates: start: 20090122, end: 20090122

REACTIONS (1)
  - URTICARIA [None]
